FAERS Safety Report 17661263 (Version 1)
Quarter: 2020Q2

REPORT INFORMATION
  Report Type: Spontaneous
  Country: DE (occurrence: DE)
  Receive Date: 20200413
  Receipt Date: 20200413
  Transmission Date: 20200713
  Serious: Yes (Hospitalization)
  Sender: FDA-Public Use
  Company Number: DE-TEVA-2020-DE-1222097

PATIENT
  Age: 51 Year
  Sex: Female

DRUGS (2)
  1. CYCLOPHOSPHAMID [Suspect]
     Active Substance: CYCLOPHOSPHAMIDE
     Dosage: NK MG
     Dates: end: 20191230
  2. EPIRUBICIN [Suspect]
     Active Substance: EPIRUBICIN
     Dosage: NK MG
     Dates: end: 20191230

REACTIONS (4)
  - Anaemia [Unknown]
  - General physical health deterioration [Unknown]
  - Diarrhoea [Unknown]
  - Haematochezia [Unknown]
